FAERS Safety Report 11166813 (Version 1)
Quarter: 2015Q2

REPORT INFORMATION
  Report Type: Spontaneous
  Country: US (occurrence: US)
  Receive Date: 20150605
  Receipt Date: 20150605
  Transmission Date: 20150821
  Serious: No
  Sender: FDA-Public Use
  Company Number: US-JNJFOC-20150418691

PATIENT
  Age: 18 Year
  Sex: Male

DRUGS (2)
  1. RISPERIDONE. [Suspect]
     Active Substance: RISPERIDONE
     Indication: PSYCHIATRIC SYMPTOM
     Route: 048
  2. LITHOBID [Suspect]
     Active Substance: LITHIUM CARBONATE
     Indication: PSYCHIATRIC SYMPTOM
     Route: 065

REACTIONS (2)
  - Drug ineffective [Unknown]
  - Musculoskeletal discomfort [Unknown]
